FAERS Safety Report 9744638 (Version 3)
Quarter: 2014Q3

REPORT INFORMATION
  Report Type: Spontaneous
  Country: US (occurrence: US)
  Receive Date: 20131210
  Receipt Date: 20140820
  Transmission Date: 20150326
  Serious: No
  Sender: FDA-Public Use
  Company Number: US-009507513-1312USA004576

PATIENT
  Sex: Female

DRUGS (1)
  1. NUVARING [Suspect]
     Active Substance: ETHINYL ESTRADIOL\ETONOGESTREL
     Indication: CONTRACEPTION
     Dosage: UNK
     Route: 067
     Dates: start: 20071102, end: 20080507

REACTIONS (9)
  - Dyspnoea [Unknown]
  - Nausea [Unknown]
  - Chills [Unknown]
  - Deep vein thrombosis [Unknown]
  - Headache [Unknown]
  - Pyrexia [Unknown]
  - Hyperhidrosis [Unknown]
  - Rash pruritic [Unknown]
  - Thrombophlebitis superficial [Unknown]

NARRATIVE: CASE EVENT DATE: 20080401
